FAERS Safety Report 25234416 (Version 1)
Quarter: 2025Q2

REPORT INFORMATION
  Report Type: Spontaneous
  Country: US (occurrence: None)
  Receive Date: 20250423
  Receipt Date: 20250423
  Transmission Date: 20250717
  Serious: No
  Sender: FDA-CTU
  Company Number: None

PATIENT
  Age: 76 Year
  Sex: Male

DRUGS (1)
  1. RINVOQ [Suspect]
     Active Substance: UPADACITINIB
     Indication: Dermatitis atopic
     Dosage: FREQUENCY : DAILY;?
     Route: 048
     Dates: start: 202504

REACTIONS (7)
  - Cardiac disorder [None]
  - Therapy interrupted [None]
  - Pruritus [None]
  - Erythema [None]
  - Skin exfoliation [None]
  - Herpes zoster [None]
  - Disease recurrence [None]
